FAERS Safety Report 20968729 (Version 4)
Quarter: 2022Q3

REPORT INFORMATION
  Report Type: Spontaneous
  Country: US (occurrence: None)
  Receive Date: 20220616
  Receipt Date: 20220826
  Transmission Date: 20221027
  Serious: Yes (Other)
  Sender: FDA-Public Use
  Company Number: 2022A217198

PATIENT
  Age: 63 Year
  Sex: Female
  Weight: 98 kg

DRUGS (68)
  1. OMEPRAZOLE [Suspect]
     Active Substance: OMEPRAZOLE
     Indication: Gastrooesophageal reflux disease
     Dosage: GENERIC
     Route: 065
     Dates: start: 200708
  2. OMEPRAZOLE [Suspect]
     Active Substance: OMEPRAZOLE
     Indication: Gastrooesophageal reflux disease
     Dosage: GENERIC
     Route: 065
     Dates: start: 200803
  3. OMEPRAZOLE [Suspect]
     Active Substance: OMEPRAZOLE
     Indication: Gastrooesophageal reflux disease
     Dosage: GENERIC
     Route: 065
  4. PREVACID [Suspect]
     Active Substance: LANSOPRAZOLE
     Indication: Gastrooesophageal reflux disease
     Route: 065
     Dates: start: 200701
  5. PREVACID [Suspect]
     Active Substance: LANSOPRAZOLE
     Indication: Gastrooesophageal reflux disease
     Route: 065
     Dates: start: 200702
  6. PREVACID [Suspect]
     Active Substance: LANSOPRAZOLE
     Indication: Gastrooesophageal reflux disease
     Route: 065
     Dates: start: 200706
  7. PREVACID [Suspect]
     Active Substance: LANSOPRAZOLE
     Indication: Gastrooesophageal reflux disease
     Route: 065
     Dates: start: 200709
  8. PREVACID [Suspect]
     Active Substance: LANSOPRAZOLE
     Indication: Gastrooesophageal reflux disease
     Route: 065
     Dates: start: 200803
  9. PREVACID [Suspect]
     Active Substance: LANSOPRAZOLE
     Indication: Gastrooesophageal reflux disease
     Route: 065
     Dates: start: 200804
  10. PREVACID [Suspect]
     Active Substance: LANSOPRAZOLE
     Indication: Gastrooesophageal reflux disease
     Route: 065
     Dates: start: 200808
  11. PREVACID [Suspect]
     Active Substance: LANSOPRAZOLE
     Indication: Gastrooesophageal reflux disease
     Route: 065
     Dates: start: 200903
  12. PREVACID [Suspect]
     Active Substance: LANSOPRAZOLE
     Indication: Gastrooesophageal reflux disease
     Route: 065
     Dates: start: 200904, end: 200910
  13. PREVACID [Suspect]
     Active Substance: LANSOPRAZOLE
     Indication: Gastrooesophageal reflux disease
     Dosage: GENERIC
     Route: 065
     Dates: start: 201010, end: 201106
  14. PREVACID [Suspect]
     Active Substance: LANSOPRAZOLE
     Indication: Gastrooesophageal reflux disease
     Dosage: GENERIC
     Route: 065
     Dates: start: 201108, end: 201111
  15. PREVACID [Suspect]
     Active Substance: LANSOPRAZOLE
     Indication: Gastrooesophageal reflux disease
     Dosage: GENERIC
     Route: 065
     Dates: start: 201409, end: 201501
  16. PREVACID [Suspect]
     Active Substance: LANSOPRAZOLE
     Indication: Gastrooesophageal reflux disease
     Dosage: GENERIC
     Route: 065
     Dates: start: 201503, end: 201510
  17. PREVACID [Suspect]
     Active Substance: LANSOPRAZOLE
     Indication: Gastrooesophageal reflux disease
     Dosage: GENERIC
     Route: 065
     Dates: start: 201611, end: 201709
  18. PANTOPRAZOLE [Suspect]
     Active Substance: PANTOPRAZOLE
     Indication: Gastrooesophageal reflux disease
     Dosage: GENERIC
     Route: 065
  19. PANTOPRAZOLE [Suspect]
     Active Substance: PANTOPRAZOLE
     Indication: Gastrooesophageal reflux disease
     Dosage: GENERIC
     Route: 065
     Dates: start: 201605, end: 201701
  20. SEVELAMER [Concomitant]
     Active Substance: SEVELAMER
     Indication: Renal disorder
     Route: 065
     Dates: start: 2017
  21. CALTROL [Concomitant]
     Indication: Renal disorder
     Route: 065
     Dates: start: 2017
  22. NIFEDIPINE [Concomitant]
     Active Substance: NIFEDIPINE
     Indication: Blood pressure abnormal
     Route: 065
     Dates: start: 2015
  23. ALLOPURINOL [Concomitant]
     Active Substance: ALLOPURINOL
     Indication: Renal disorder
     Route: 065
     Dates: start: 2017
  24. CARVEDILOL [Concomitant]
     Active Substance: CARVEDILOL
     Indication: Cardiac discomfort
     Route: 065
     Dates: start: 2016
  25. NASONEX [Concomitant]
     Active Substance: MOMETASONE FUROATE
     Indication: Hypersensitivity
     Route: 065
     Dates: start: 2016
  26. CLONIDINE [Concomitant]
     Active Substance: CLONIDINE
     Indication: Blood pressure abnormal
     Route: 065
     Dates: start: 2016
  27. SIMVASTATIN [Concomitant]
     Active Substance: SIMVASTATIN
     Indication: Blood cholesterol abnormal
     Route: 065
     Dates: start: 2015
  28. TIZANIDINE [Concomitant]
     Active Substance: TIZANIDINE
     Indication: Pain
     Route: 065
     Dates: start: 2015, end: 2017
  29. HYDROCODONE [Concomitant]
     Active Substance: HYDROCODONE
     Indication: Pain
     Route: 065
     Dates: start: 2007, end: 2017
  30. LISINOPRIL [Concomitant]
     Active Substance: LISINOPRIL
     Indication: Blood pressure abnormal
     Route: 065
     Dates: start: 2016, end: 2017
  31. METOPROLOL [Concomitant]
     Active Substance: METOPROLOL
     Indication: Blood pressure abnormal
     Route: 065
     Dates: start: 2007, end: 2009
  32. TEMAZEPAM [Concomitant]
     Active Substance: TEMAZEPAM
     Indication: Insomnia
     Route: 065
     Dates: start: 2007, end: 2016
  33. AMLODIPINE [Concomitant]
     Active Substance: AMLODIPINE BESYLATE
     Indication: Blood pressure abnormal
     Route: 065
     Dates: start: 2007, end: 2012
  34. AMITRIPTYLINE [Concomitant]
     Active Substance: AMITRIPTYLINE
     Indication: Depression
     Route: 065
     Dates: start: 2008, end: 2009
  35. CICLOPIROX [Concomitant]
     Active Substance: CICLOPIROX
  36. DICLOFENAC [Concomitant]
     Active Substance: DICLOFENAC
  37. BUMETANIDE [Concomitant]
     Active Substance: BUMETANIDE
  38. LACTULOSE [Concomitant]
     Active Substance: LACTULOSE
  39. METHOCARBAMOL [Concomitant]
     Active Substance: METHOCARBAMOL
  40. CYANOCOBALAMIN/FOLIC ACID/IRON [Concomitant]
  41. CEPHALEXIN [Concomitant]
     Active Substance: CEPHALEXIN
  42. MUPIROCIN [Concomitant]
     Active Substance: MUPIROCIN
  43. CYCLOBENZAPRINE [Concomitant]
     Active Substance: CYCLOBENZAPRINE
  44. HYDROCORTISONE [Concomitant]
     Active Substance: HYDROCORTISONE
  45. MELOXICAM [Concomitant]
     Active Substance: MELOXICAM
  46. MICONAZOLE [Concomitant]
     Active Substance: MICONAZOLE
  47. CIPROFLOXACIN [Concomitant]
     Active Substance: CIPROFLOXACIN
  48. LASIX [Concomitant]
     Active Substance: FUROSEMIDE
  49. WELLBUTRIN [Concomitant]
     Active Substance: BUPROPION HYDROCHLORIDE
  50. LIPITOR [Concomitant]
     Active Substance: ATORVASTATIN CALCIUM
  51. DARVOCET [Concomitant]
     Active Substance: ACETAMINOPHEN\PROPOXYPHENE HYDROCHLORIDE
  52. WIXELA INHUB [Concomitant]
     Active Substance: FLUTICASONE PROPIONATE\SALMETEROL XINAFOATE
  53. CYANOCOBALAMIN [Concomitant]
     Active Substance: CYANOCOBALAMIN
  54. ACETAMINOPHEN\HYDROCODONE BITARTRATE [Concomitant]
     Active Substance: ACETAMINOPHEN\HYDROCODONE BITARTRATE
  55. SORBITOL [Concomitant]
     Active Substance: SORBITOL
  56. AMMONIUM LACTATE [Concomitant]
     Active Substance: AMMONIUM LACTATE
  57. ATROVENT [Concomitant]
     Active Substance: IPRATROPIUM BROMIDE
  58. BUMEX [Concomitant]
     Active Substance: BUMETANIDE
  59. COLACE [Concomitant]
     Active Substance: DOCUSATE SODIUM
  60. FOLIC ACID [Concomitant]
     Active Substance: FOLIC ACID
  61. FERROUS SULFATE [Concomitant]
     Active Substance: FERROUS SULFATE
  62. ADVAIR DISKUS [Concomitant]
     Active Substance: FLUTICASONE PROPIONATE\SALMETEROL XINAFOATE
  63. RENVELA [Concomitant]
     Active Substance: SEVELAMER CARBONATE
  64. RESTORIL [Concomitant]
     Active Substance: TEMAZEPAM
  65. ATROPINE [Concomitant]
     Active Substance: ATROPINE
  66. HYDROMORPHONE [Concomitant]
     Active Substance: HYDROMORPHONE
  67. OXYCODONE [Concomitant]
     Active Substance: OXYCODONE
  68. EPHEDRINE [Concomitant]
     Active Substance: EPHEDRINE

REACTIONS (6)
  - Chronic kidney disease [Not Recovered/Not Resolved]
  - Renal failure [Unknown]
  - End stage renal disease [Unknown]
  - Nephrogenic anaemia [Unknown]
  - Hyperparathyroidism secondary [Unknown]
  - Chronic kidney disease-mineral and bone disorder [Unknown]

NARRATIVE: CASE EVENT DATE: 20150101
